FAERS Safety Report 5684134-X (Version None)
Quarter: 2008Q1

REPORT INFORMATION
  Report Type: 
  Country: None (occurrence: None)
  Receive Date: 20080328
  Receipt Date: 20070525
  Transmission Date: 20080703
  Serious: No
  Sender: FDA-Public Use
  Company Number: US-AMGEN-KDL215701

PATIENT
  Sex: Female

DRUGS (8)
  1. NEULASTA [Suspect]
     Indication: CHEMOTHERAPY
     Route: 058
     Dates: start: 20070314, end: 20070314
  2. ADRIAMYCIN PFS [Concomitant]
     Dates: start: 20070313, end: 20070313
  3. CYTOXAN [Concomitant]
     Dates: start: 20070313, end: 20070313
  4. TAXOTERE [Concomitant]
     Dates: start: 20070313, end: 20070313
  5. CALCIUM [Concomitant]
     Dates: start: 20070314
  6. VITAMIN D [Concomitant]
     Dates: start: 20070314
  7. MINOCYCLINE HCL [Concomitant]
     Dates: start: 20070314
  8. EFFEXOR [Concomitant]
     Dates: start: 20070314

REACTIONS (6)
  - DYSPNOEA [None]
  - INJECTION SITE PRURITUS [None]
  - NASAL CONGESTION [None]
  - NAUSEA [None]
  - PRURITUS GENERALISED [None]
  - VOMITING [None]
